FAERS Safety Report 13940642 (Version 1)
Quarter: 2017Q3

REPORT INFORMATION
  Report Type: Spontaneous
  Country: GB (occurrence: GB)
  Receive Date: 20170906
  Receipt Date: 20170906
  Transmission Date: 20171127
  Serious: Yes (Other)
  Sender: FDA-Public Use
  Company Number: GB-TEVA-801811ACC

PATIENT
  Age: 82 Year
  Sex: Female

DRUGS (3)
  1. HALOPERIDOL. [Suspect]
     Active Substance: HALOPERIDOL
     Dosage: INFUSION
     Route: 058
     Dates: start: 20170705
  2. FENTANYL. [Suspect]
     Active Substance: FENTANYL
     Route: 062
     Dates: end: 20170705
  3. DIAMORPHINE [Suspect]
     Active Substance: DIAMORPHINE
     Dosage: INFUSION
     Route: 058
     Dates: start: 20170705

REACTIONS (5)
  - Drug prescribing error [Unknown]
  - Respiratory depression [Recovering/Resolving]
  - Toxicity to various agents [Recovering/Resolving]
  - Dyspnoea [Recovering/Resolving]
  - Depressed level of consciousness [Recovering/Resolving]

NARRATIVE: CASE EVENT DATE: 20170705
